FAERS Safety Report 7457481-9 (Version None)
Quarter: 2011Q2

REPORT INFORMATION
  Report Type: 
  Country: None (occurrence: None)
  Receive Date: 20110504
  Receipt Date: 20110426
  Transmission Date: 20111010
  Serious: Yes (Hospitalization)
  Sender: FDA-Public Use
  Company Number: FR-ELI_LILLY_AND_COMPANY-FR201104008112

PATIENT
  Sex: Female
  Weight: 68 kg

DRUGS (4)
  1. CRESTOR [Concomitant]
     Dosage: 10 MG, QD
     Route: 048
     Dates: start: 20110424, end: 20110424
  2. EFFIENT [Suspect]
     Indication: ACUTE CORONARY SYNDROME
     Dosage: 10 MG, QD
     Route: 048
     Dates: start: 20110424, end: 20110424
  3. NORFLOXACIN [Concomitant]
     Dosage: 400MG X 2, QD
     Route: 048
     Dates: start: 20110424, end: 20110424
  4. SECTRAL [Concomitant]
     Dosage: 200MG X 0.5, QD
     Dates: start: 20110424, end: 20110424

REACTIONS (1)
  - HEPATOCELLULAR INJURY [None]
